FAERS Safety Report 8876414 (Version 1)
Quarter: 2012Q4

REPORT INFORMATION
  Report Type: 
  Country: US (occurrence: US)
  Receive Date: 20121023
  Receipt Date: 20121023
  Transmission Date: 20130627
  Serious: No
  Sender: FDA-Public Use
  Company Number: US-ASTELLAS-2012US007785

PATIENT
  Sex: Female

DRUGS (2)
  1. LEXISCAN [Suspect]
     Indication: SCAN MYOCARDIAL PERFUSION
     Dosage: UNK
     Route: 042
     Dates: start: 20120911, end: 20120911
  2. NORMAL SALINE [Concomitant]
     Indication: INTRAVENOUS CATHETER MANAGEMENT
     Dosage: UNK
     Route: 042
     Dates: start: 20120911, end: 20120911

REACTIONS (3)
  - Drug administration error [Recovered/Resolved]
  - Infusion site pain [Recovered/Resolved]
  - Infusion site extravasation [Recovered/Resolved]
